FAERS Safety Report 5286291-6 (Version None)
Quarter: 2007Q1

REPORT INFORMATION
  Report Type: 
  Country: None (occurrence: None)
  Receive Date: 20070116
  Receipt Date: 20061206
  Transmission Date: 20070707
  Serious: No
  Sender: FDA-Public Use
  Company Number: 2006SP004302

PATIENT
  Age: 58 Year
  Sex: Female
  Weight: 65.7716 kg

DRUGS (6)
  1. LUNESTA [Suspect]
     Indication: INSOMNIA
     Dosage: 3 MG;HS;ORAL
     Route: 048
     Dates: start: 20061001
  2. KEPPRA [Concomitant]
  3. ASMANEX TWISTHALER [Concomitant]
  4. ZYFLO [Concomitant]
  5. FORMOTEROL FUMARATE [Concomitant]
  6. AMBIEN [Concomitant]

REACTIONS (2)
  - DEPRESSION [None]
  - INITIAL INSOMNIA [None]
